FAERS Safety Report 8101096-6 (Version None)
Quarter: 2012Q1

REPORT INFORMATION
  Report Type: 
  Country: None (occurrence: None)
  Receive Date: 20120129
  Receipt Date: 20111012
  Transmission Date: 20120608
  Serious: No
  Sender: FDA-Public Use
  Company Number: US-ABBOTT-11P-163-0852914-00

PATIENT
  Age: 53 Year
  Sex: Female

DRUGS (18)
  1. MULTI-VITAMIN [Concomitant]
     Indication: PROPHYLAXIS
     Dosage: DAILY
  2. CALCIUM W/VITAMIN D [Concomitant]
     Indication: PROPHYLAXIS
  3. ZYRTEC [Concomitant]
     Indication: SEASONAL ALLERGY
     Dosage: TAKES ONE
     Route: 048
  4. BONIVA [Concomitant]
     Indication: OSTEOPENIA
  5. FOLIC ACID [Concomitant]
     Dosage: ADDITIONAL DOSE OF 4 MG EACH WEEK
  6. ASPIRIN [Concomitant]
     Indication: CARDIOVASCULAR EVENT PROPHYLAXIS
     Dosage: 1 EVERY DAY
  7. ALENDRONATE SODIUM [Concomitant]
     Indication: OSTEOPENIA
  8. HUMIRA [Suspect]
     Indication: PSORIASIS
     Dates: start: 20090501
  9. HUMIRA [Suspect]
     Indication: PUSTULAR PSORIASIS
  10. ATENOLOL [Concomitant]
     Indication: HYPERTENSION
  11. METHOTREXATE [Concomitant]
     Indication: PRODUCT USED FOR UNKNOWN INDICATION
  12. VERAMYST [Concomitant]
     Indication: SEASONAL ALLERGY
     Dosage: EVERY DAY
  13. HUMIRA [Suspect]
  14. LEVOTHYROXINE SODIUM [Concomitant]
     Indication: PRODUCT USED FOR UNKNOWN INDICATION
  15. PREMPRO [Concomitant]
     Indication: MENOPAUSAL SYMPTOMS
  16. CALCIUM W/VITAMIN D [Concomitant]
     Indication: VITAMIN SUPPLEMENTATION
  17. FOLIC ACID [Concomitant]
     Indication: PRODUCT USED FOR UNKNOWN INDICATION
     Dosage: 1MG/DAY WITH ADDITIONAL DOSE 4MG Q WEEK
  18. OSTEO CHONDROITIN [Concomitant]
     Indication: PROPHYLAXIS

REACTIONS (3)
  - CONTUSION [None]
  - DRUG INEFFECTIVE [None]
  - INJECTION SITE PAIN [None]
